FAERS Safety Report 7153270-3 (Version None)
Quarter: 2010Q4

REPORT INFORMATION
  Report Type: 
  Country: None (occurrence: None)
  Receive Date: 20101213
  Receipt Date: 20101129
  Transmission Date: 20110411
  Serious: Yes (Other)
  Sender: FDA-Public Use
  Company Number: FR-AMGEN-FRASP2010007390

PATIENT

DRUGS (4)
  1. ETANERCEPT [Suspect]
     Indication: RHEUMATOID ARTHRITIS
     Dosage: UNK
     Dates: start: 20101116, end: 20101101
  2. KETOPROFEN [Concomitant]
     Dosage: UNK
     Dates: start: 20101028
  3. PANTOPRAZOLE [Concomitant]
  4. DOLIPRANE [Concomitant]
     Dosage: UNK UNK, UNK
     Dates: start: 20101028

REACTIONS (6)
  - COUGH [None]
  - DYSPNOEA [None]
  - FATIGUE [None]
  - MALAISE [None]
  - MYALGIA [None]
  - PYREXIA [None]
